FAERS Safety Report 5521446-4 (Version None)
Quarter: 2007Q4

REPORT INFORMATION
  Report Type: 
  Country: None (occurrence: None)
  Receive Date: 20071119
  Receipt Date: 20071114
  Transmission Date: 20080405
  Serious: Yes (Disabling)
  Sender: FDA-Public Use
  Company Number: US-GILEAD-2007-0013980

PATIENT
  Age: 68 Year
  Sex: Male
  Weight: 118.04 kg

DRUGS (17)
  1. LETAIRIS [Suspect]
     Indication: PULMONARY HYPERTENSION
     Route: 048
     Dates: start: 20071002, end: 20071012
  2. SOTALOL HYDROCHLORIDE [Concomitant]
     Route: 048
  3. ZOCOR [Concomitant]
     Route: 048
  4. TORSEMIDE [Concomitant]
     Route: 048
  5. MINOXIDIL [Concomitant]
     Route: 048
  6. ALTACE [Concomitant]
     Route: 048
  7. PLAVIX [Concomitant]
     Route: 048
  8. GLIPIZIDE [Concomitant]
     Route: 048
  9. LANTUS [Concomitant]
     Route: 058
  10. GLYBURIDE [Concomitant]
     Route: 048
  11. ACTOS [Concomitant]
     Route: 048
  12. NITROSTAT [Concomitant]
     Route: 060
  13. CIALIS [Concomitant]
     Route: 048
  14. POTASSIUM CHLORIDE [Concomitant]
     Route: 048
  15. FOLIC ACID [Concomitant]
     Route: 048
  16. VITAMIN B-12 [Concomitant]
     Route: 048
  17. VITAMIN B6 [Concomitant]
     Route: 048

REACTIONS (6)
  - CHEST DISCOMFORT [None]
  - DIZZINESS [None]
  - DYSPNOEA [None]
  - HYPOTENSION [None]
  - NIGHTMARE [None]
  - PHOTOPHOBIA [None]
